FAERS Safety Report 7554909-0 (Version None)
Quarter: 2011Q2

REPORT INFORMATION
  Report Type: 
  Country: None (occurrence: None)
  Receive Date: 20110617
  Receipt Date: 20110609
  Transmission Date: 20111010
  Serious: Yes (Hospitalization, Other)
  Sender: FDA-Public Use
  Company Number: US-AMGEN-USASP2011001606

PATIENT
  Age: 60 Year
  Sex: Male

DRUGS (3)
  1. LIPITOR [Concomitant]
     Indication: DYSLIPIDAEMIA
  2. METHOTREXATE [Concomitant]
     Dosage: UNK
     Dates: start: 20091001
  3. ENBREL [Suspect]
     Indication: RHEUMATOID ARTHRITIS
     Dosage: 50 MG, QWK
     Route: 058
     Dates: start: 20100427, end: 20110110

REACTIONS (2)
  - LUNG ADENOCARCINOMA STAGE IV [None]
  - METASTASES TO CENTRAL NERVOUS SYSTEM [None]
